FAERS Safety Report 9339510 (Version 6)
Quarter: 2013Q4

REPORT INFORMATION
  Report Type: Spontaneous
  Country: CA (occurrence: CA)
  Receive Date: 20130610
  Receipt Date: 20131121
  Transmission Date: 20140711
  Serious: Yes (Other)
  Sender: FDA-Public Use
  Company Number: CA-ROCHE-1232630

PATIENT
  Age: 34 Year
  Sex: Female

DRUGS (8)
  1. XOLAIR [Suspect]
     Indication: ASTHMA
     Route: 058
     Dates: start: 20111122
  2. XOLAIR [Suspect]
     Route: 065
     Dates: start: 20111219
  3. XOLAIR [Suspect]
     Route: 065
     Dates: start: 20130205
  4. XOLAIR [Suspect]
     Route: 065
     Dates: start: 20130722
  5. XOLAIR [Suspect]
     Route: 065
     Dates: start: 20130820
  6. ADVAIR [Concomitant]
  7. VENTOLIN [Concomitant]
  8. PULMICORT [Concomitant]

REACTIONS (17)
  - Pneumonia [Unknown]
  - Chest pain [Unknown]
  - Respiratory tract congestion [Unknown]
  - Rhinorrhoea [Unknown]
  - Nasopharyngitis [Unknown]
  - Sinus congestion [Not Recovered/Not Resolved]
  - Wheezing [Unknown]
  - Oropharyngeal pain [Unknown]
  - Headache [Unknown]
  - Somnolence [Unknown]
  - Pulmonary congestion [Unknown]
  - Pain [Unknown]
  - Fatigue [Unknown]
  - Injection site pain [Unknown]
  - Sinus headache [Not Recovered/Not Resolved]
  - Obstructive airways disorder [Unknown]
  - Cough [Unknown]
